FAERS Safety Report 10431460 (Version 2)
Quarter: 2014Q4

REPORT INFORMATION
  Report Type: Spontaneous
  Country: IT (occurrence: IT)
  Receive Date: 20140904
  Receipt Date: 20141113
  Transmission Date: 20150528
  Serious: Yes (Other)
  Sender: FDA-Public Use
  Company Number: IT-ABBVIE-14P-083-1279044-00

PATIENT
  Age: 68 Year
  Sex: Female

DRUGS (3)
  1. QUETIAPINE FUMARATE. [Suspect]
     Active Substance: QUETIAPINE FUMARATE
     Indication: INTENTIONAL OVERDOSE
     Route: 065
  2. CLONAZEPAM. [Suspect]
     Active Substance: CLONAZEPAM
     Indication: INTENTIONAL OVERDOSE
     Route: 065
  3. SODIUM VALPROATE/VALPROIC ACID (DEPAKIN) [Suspect]
     Active Substance: VALPROATE SODIUM
     Indication: INTENTIONAL OVERDOSE
     Route: 065

REACTIONS (6)
  - Bradyphrenia [Recovering/Resolving]
  - Intentional overdose [None]
  - Speech disorder [Recovering/Resolving]
  - Language disorder [Unknown]
  - Bradykinesia [Recovering/Resolving]
  - Intentional overdose [Recovering/Resolving]

NARRATIVE: CASE EVENT DATE: 20140808
